FAERS Safety Report 6726597-4 (Version None)
Quarter: 2010Q2

REPORT INFORMATION
  Report Type: 
  Country: None (occurrence: None)
  Receive Date: 20100514
  Receipt Date: 20100503
  Transmission Date: 20101027
  Serious: Yes (Hospitalization)
  Sender: FDA-Public Use
  Company Number: US-ELI_LILLY_AND_COMPANY-US201002004976

PATIENT
  Sex: Male
  Weight: 96.599 kg

DRUGS (10)
  1. ZYPREXA [Suspect]
     Dosage: 10 MG, DAILY (1/D)
     Dates: start: 19970101, end: 20090101
  2. ZYPREXA [Suspect]
     Dosage: 20 MG, EACH EVENING
  3. ZYPREXA [Suspect]
     Dosage: 15 MG, DAILY (1/D)
     Dates: start: 20060421
  4. PROPRANOLOL [Concomitant]
     Dosage: 20 MG, 2/D
  5. LITHIUM CARBONATE [Concomitant]
     Dosage: 600 MG, 2/D
  6. ACIPHEX [Concomitant]
     Dosage: 20 MG, DAILY (1/D)
  7. CLONAZEPAM [Concomitant]
     Dosage: 0.5 MG, 2/D
  8. FLUOXETINE [Concomitant]
     Dosage: 100 MG, EACH EVENING
  9. FLUOXETINE [Concomitant]
     Dosage: 40 MG, UNK
  10. FLUOXETINE [Concomitant]
     Dosage: 80 MG, UNK

REACTIONS (24)
  - ABDOMINAL DISTENSION [None]
  - ABDOMINAL PAIN [None]
  - ALANINE AMINOTRANSFERASE INCREASED [None]
  - ASPARTATE AMINOTRANSFERASE INCREASED [None]
  - AUTOIMMUNE DISORDER [None]
  - BILE DUCT OBSTRUCTION [None]
  - BLOOD ALKALINE PHOSPHATASE INCREASED [None]
  - BLOOD TRIGLYCERIDES INCREASED [None]
  - DIABETES MELLITUS [None]
  - DYSPEPSIA [None]
  - FATIGUE [None]
  - HEPATIC ENZYME INCREASED [None]
  - HEPATIC FUNCTION ABNORMAL [None]
  - HEPATITIS [None]
  - HYPERTENSION [None]
  - HYPOKALAEMIA [None]
  - LIVER DISORDER [None]
  - METABOLIC DISORDER [None]
  - NAUSEA [None]
  - OBESITY [None]
  - VISION BLURRED [None]
  - VOMITING [None]
  - WEIGHT DECREASED [None]
  - WEIGHT INCREASED [None]
